FAERS Safety Report 5339095-X (Version None)
Quarter: 2007Q2

REPORT INFORMATION
  Report Type: 
  Country: None (occurrence: None)
  Receive Date: 20070530
  Receipt Date: 20070520
  Transmission Date: 20071010
  Serious: Yes (Other)
  Sender: FDA-Public Use
  Company Number: US-PFIZER INC-2007040891

PATIENT
  Sex: Female
  Weight: 65.909 kg

DRUGS (1)
  1. CHANTIX [Suspect]
     Indication: SMOKING CESSATION THERAPY
     Dosage: DAILY DOSE:.5MG
     Dates: start: 20070517, end: 20070520

REACTIONS (3)
  - ANXIETY [None]
  - NAUSEA [None]
  - VOMITING [None]
